FAERS Safety Report 6376646-0 (Version None)
Quarter: 2009Q3

REPORT INFORMATION
  Report Type: 
  Country: None (occurrence: None)
  Receive Date: 20090925
  Receipt Date: 20090922
  Transmission Date: 20100115
  Serious: Yes (Death)
  Sender: FDA-Public Use
  Company Number: PHEH2009US11263

PATIENT
  Sex: Male

DRUGS (5)
  1. EXJADE [Suspect]
     Indication: IRON OVERLOAD
     Dosage: 2500 MG, QD
     Route: 048
     Dates: start: 20060201, end: 20090601
  2. PROTONIX [Concomitant]
     Indication: GASTROOESOPHAGEAL REFLUX DISEASE
     Dosage: 40 MG, DAILY
  3. CALCIUM [Concomitant]
     Dosage: 600 MG, TID
  4. NEUPOGEN [Concomitant]
     Indication: NEUTROPENIA
     Dosage: 480 UG, BIW
  5. GLIPIZIDE [Concomitant]
     Indication: DIABETES MELLITUS
     Dosage: 2.5 MG, DAILY

REACTIONS (1)
  - DISEASE PROGRESSION [None]
